FAERS Safety Report 5318177-2 (Version None)
Quarter: 2007Q2

REPORT INFORMATION
  Report Type: 
  Country: None (occurrence: None)
  Receive Date: 20070507
  Receipt Date: 20070425
  Transmission Date: 20071010
  Serious: Yes (Other)
  Sender: FDA-Public Use
  Company Number: US-PFIZER INC-2007014457

PATIENT
  Sex: Male
  Weight: 90.7 kg

DRUGS (3)
  1. LOPID [Suspect]
     Indication: BLOOD TRIGLYCERIDES INCREASED
     Dates: start: 20060801, end: 20061201
  2. LOPID [Suspect]
  3. LEVOTHYROXINE SODIUM [Concomitant]
     Dates: start: 20050801

REACTIONS (6)
  - ASTHENIA [None]
  - BLOOD CREATININE DECREASED [None]
  - MUSCLE ATROPHY [None]
  - MUSCULAR WEAKNESS [None]
  - PAIN [None]
  - PYREXIA [None]
